FAERS Safety Report 8973205 (Version 1)
Quarter: 2012Q4

REPORT INFORMATION
  Report Type: 
  Country: AR (occurrence: AR)
  Receive Date: 20121218
  Receipt Date: 20121218
  Transmission Date: 20130627
  Serious: Yes (Other)
  Sender: FDA-Public Use
  Company Number: AR-PFIZER INC-2012315148

PATIENT
  Age: 16 Year
  Sex: Male

DRUGS (1)
  1. GENOTROPIN [Suspect]
     Dosage: 1-1.4 mg, 7x/week
     Dates: start: 20121008

REACTIONS (2)
  - Transplant rejection [Unknown]
  - Renal failure [Not Recovered/Not Resolved]
